FAERS Safety Report 5228140-8 (Version None)
Quarter: 2007Q1

REPORT INFORMATION
  Report Type: 
  Country: None (occurrence: None)
  Receive Date: 20070130
  Receipt Date: 20070118
  Transmission Date: 20070707
  Serious: Yes (Other)
  Sender: FDA-Public Use
  Company Number: 2006300689

PATIENT
  Age: 18 Year
  Sex: Male
  Weight: 90.7194 kg

DRUGS (2)
  1. LISTERINE MOUTHWASH ADVANCED ARCTIC MINT (MENTHOL, METHYL SALICYLATE, [Suspect]
     Indication: DENTAL DISORDER PROPHYLAXIS
     Dosage: 20 ML 2 TO 3 TIMES DAILY (20 ML), ORAL
     Route: 048
     Dates: start: 20060101, end: 20061218
  2. NATURAL CITRUS LISTERINE (MENTHOL, METHYL SALICYLATE, EUCALYPTOL, THYM [Suspect]
     Indication: DENTAL DISORDER PROPHYLAXIS
     Dosage: 20 ML 2 TO 3 TIMES DAILY (20 ML), ORAL
     Route: 048
     Dates: start: 20060101, end: 20061218

REACTIONS (3)
  - CAUSTIC INJURY [None]
  - GINGIVAL PAIN [None]
  - ORAL MUCOSAL EXFOLIATION [None]
